FAERS Safety Report 19312123 (Version 1)
Quarter: 2021Q2

REPORT INFORMATION
  Report Type: Spontaneous
  Country: FR (occurrence: FR)
  Receive Date: 20210527
  Receipt Date: 20210527
  Transmission Date: 20210717
  Serious: Yes (Other)
  Sender: FDA-Public Use
  Company Number: FR-TEVA-2021-FR-1915038

PATIENT
  Age: 34 Year
  Sex: Male
  Weight: 48 kg

DRUGS (2)
  1. BACTRIM [Suspect]
     Active Substance: SULFAMETHOXAZOLE\TRIMETHOPRIM
     Indication: POST PROCEDURAL INFECTION
     Dosage: 1200 MG OR 800MG / DAY
     Route: 048
     Dates: start: 20210331, end: 20210412
  2. VALGANCI (VALGANCICLOVIR HYDROCHLORIDE) [Suspect]
     Active Substance: VALGANCICLOVIR HYDROCHLORIDE
     Indication: INFECTION
     Dosage: 450MG
     Route: 048
     Dates: start: 20210401, end: 20210411

REACTIONS (3)
  - Thrombocytopenia [Recovering/Resolving]
  - Condition aggravated [Recovering/Resolving]
  - Overdose [Recovered/Resolved]

NARRATIVE: CASE EVENT DATE: 20210129
